FAERS Safety Report 4334253-5 (Version None)
Quarter: 2004Q2

REPORT INFORMATION
  Report Type: 
  Country: None (occurrence: None)
  Receive Date: 20040405
  Receipt Date: 20040324
  Transmission Date: 20050107
  Serious: No
  Sender: FDA-Public Use
  Company Number: 04H-163-0254791-00

PATIENT
  Age: 73 Year
  Sex: Male
  Weight: 65.5 kg

DRUGS (7)
  1. MORPHINE SULFATE 1MG/ML INJ PRESERV. FREE, USP 30 ML PCA ABBOJECT (MOR [Suspect]
     Indication: PAIN
     Dosage: 1 MG LOCKOUT WITH 4HTR MAX. DELIVERY OF 20 MG INTRAVENOUS
     Route: 042
     Dates: start: 19990101
  2. HYDROMORPHONE [Suspect]
     Indication: PAIN
     Dosage: 1 MG
     Dates: start: 19990101
  3. WARFARIN SODIUM [Concomitant]
  4. EPOGEN [Concomitant]
  5. FAMOTIDINE [Concomitant]
  6. DIGOXIN [Concomitant]
  7. FOLIC ACID [Concomitant]

REACTIONS (12)
  - ANURIA [None]
  - ASPIRATION [None]
  - COMA [None]
  - CONFUSIONAL STATE [None]
  - DIALYSIS [None]
  - HAEMORRHAGE INTRACRANIAL [None]
  - LETHARGY [None]
  - MIOSIS [None]
  - PUPIL FIXED [None]
  - RESPIRATORY DEPRESSION [None]
  - RESPIRATORY DISTRESS [None]
  - SPEECH DISORDER [None]
